FAERS Safety Report 5747017-2 (Version None)
Quarter: 2008Q2

REPORT INFORMATION
  Report Type: 
  Country: None (occurrence: None)
  Receive Date: 20080522
  Receipt Date: 20080512
  Transmission Date: 20081010
  Serious: Yes (Hospitalization)
  Sender: FDA-Public Use
  Company Number: US-ABBOTT-08P-163-0451414-00

PATIENT
  Sex: Male

DRUGS (1)
  1. HUMIRA [Suspect]
     Indication: CROHN'S DISEASE
     Route: 058
     Dates: start: 20080101

REACTIONS (5)
  - HERPES ZOSTER [None]
  - MALIGNANT MELANOMA [None]
  - RASH [None]
  - STAPHYLOCOCCAL INFECTION [None]
  - VARICELLA [None]
